FAERS Safety Report 19401221 (Version 1)
Quarter: 2021Q2

REPORT INFORMATION
  Report Type: Other
  Country: US (occurrence: US)
  Receive Date: 20210610
  Receipt Date: 20210610
  Transmission Date: 20210717
  Serious: No
  Sender: FDA-Public Use
  Company Number: US-ROCHE-2845237

PATIENT
  Age: 35 Year
  Sex: Female
  Weight: 79.45 kg

DRUGS (6)
  1. TYLENOL [Concomitant]
     Active Substance: ACETAMINOPHEN
  2. LABETALOL [Concomitant]
     Active Substance: LABETALOL\LABETALOL HYDROCHLORIDE
     Indication: HYPERTENSION
     Route: 048
     Dates: start: 20200921
  3. OCREVUS [Suspect]
     Active Substance: OCRELIZUMAB
     Indication: RELAPSING-REMITTING MULTIPLE SCLEROSIS
     Dosage: 300 MG ONCE IN 2 WEEKS, THEN 600 MG ONCE IN 6 MONTHS
     Route: 042
     Dates: start: 20191220, end: 20200103
  4. BENADRYL [Concomitant]
     Active Substance: DIPHENHYDRAMINE HYDROCHLORIDE
  5. OCREVUS [Suspect]
     Active Substance: OCRELIZUMAB
     Dosage: DATE OF TREATMENT: 09/DEC/2020, 18/MAY/2021
     Route: 042
  6. FISH OIL [Concomitant]
     Active Substance: FISH OIL
     Route: 048

REACTIONS (2)
  - JC polyomavirus test positive [Unknown]
  - Pyrexia [Recovered/Resolved]

NARRATIVE: CASE EVENT DATE: 202103
